FAERS Safety Report 5101881-9 (Version None)
Quarter: 2006Q3

REPORT INFORMATION
  Report Type: 
  Country: None (occurrence: None)
  Receive Date: 20060907
  Receipt Date: 20060828
  Transmission Date: 20061208
  Serious: Yes (Death, Other)
  Sender: FDA-Public Use
  Company Number: US200604002349

PATIENT
  Sex: Female
  Weight: 81.6 kg

DRUGS (3)
  1. ZYPREXA [Suspect]
     Indication: DEPRESSION
     Dosage: 7.5 MG
     Dates: start: 19970201, end: 20030701
  2. EFFEXOR XR [Concomitant]
  3. DESIPRAMINE HCL [Concomitant]

REACTIONS (3)
  - CONDITION AGGRAVATED [None]
  - DIABETES MELLITUS [None]
  - PANCREATITIS [None]
